FAERS Safety Report 8606837 (Version 3)
Quarter: 2014Q1

REPORT INFORMATION
  Report Type: Spontaneous
  Country: US (occurrence: US)
  Receive Date: 20120611
  Receipt Date: 20140109
  Transmission Date: 20141002
  Serious: Yes (Hospitalization, Other)
  Sender: FDA-Public Use
  Company Number: US-ASTRAZENECA-2012SE35798

PATIENT
  Age: 59 Year
  Sex: Male
  Weight: 72.6 kg

DRUGS (29)
  1. NEXIUM [Suspect]
     Indication: GASTROOESOPHAGEAL REFLUX DISEASE
     Route: 048
     Dates: start: 20040803
  2. NEXIUM [Suspect]
     Indication: GASTROOESOPHAGEAL REFLUX DISEASE
     Route: 048
     Dates: start: 20040803
  3. NEXIUM [Suspect]
     Indication: GASTROOESOPHAGEAL REFLUX DISEASE
     Dosage: ONCE DAILY
     Route: 048
     Dates: start: 20041201, end: 20080901
  4. NEXIUM [Suspect]
     Indication: GASTROOESOPHAGEAL REFLUX DISEASE
     Dosage: ONCE DAILY
     Route: 048
     Dates: start: 20041201, end: 20080901
  5. PRILOSEC [Suspect]
     Indication: GASTROOESOPHAGEAL REFLUX DISEASE
     Route: 048
     Dates: start: 20070303
  6. PRILOSEC [Suspect]
     Indication: GASTROOESOPHAGEAL REFLUX DISEASE
     Dosage: ONCE DAILY
     Route: 048
     Dates: start: 20080901
  7. PRILOSEC [Suspect]
     Indication: GASTROOESOPHAGEAL REFLUX DISEASE
     Route: 048
     Dates: start: 20080905
  8. PROTONIX [Concomitant]
     Indication: ABDOMINAL DISCOMFORT
     Dosage: TWICE DAILY
     Dates: start: 20040415
  9. PROTONIX [Concomitant]
     Indication: ABDOMINAL DISCOMFORT
     Dates: start: 20040602
  10. ALKA SELTZER [Concomitant]
     Route: 048
  11. PEPTO BISMOL [Concomitant]
  12. ROLAIDS [Concomitant]
     Route: 048
  13. COMBIVENT [Concomitant]
     Indication: CHRONIC OBSTRUCTIVE PULMONARY DISEASE
  14. ARAVA [Concomitant]
     Indication: RHEUMATIC DISORDER
     Route: 048
  15. MULTI-VITAMINS [Concomitant]
     Indication: ROUTINE HEALTH MAINTENANCE
     Route: 048
  16. GINKO [Concomitant]
     Indication: MEMORY IMPAIRMENT
     Route: 048
  17. GINKO [Concomitant]
     Indication: ASTHENIA
     Route: 048
  18. GINSENG [Concomitant]
     Indication: MEMORY IMPAIRMENT
     Route: 048
  19. GINSENG [Concomitant]
     Indication: ASTHENIA
     Route: 048
  20. NAPROXEN [Concomitant]
     Route: 048
  21. PERCOCET [Concomitant]
     Route: 048
  22. ASPIRINE [Concomitant]
     Route: 048
  23. DEXAMETHASONE [Concomitant]
     Dates: start: 20040604
  24. PROCHLORPERAZINE [Concomitant]
     Dates: start: 20040804
  25. KYTRIL [Concomitant]
     Dates: start: 20040604
  26. PREDNISONE [Concomitant]
     Dates: start: 20041203
  27. FLEXERIL [Concomitant]
     Dates: start: 20050318
  28. FEXOFENADINE HCL [Concomitant]
     Dates: start: 20051222
  29. VYTORIN [Concomitant]
     Dosage: 10/20 TABLET
     Dates: start: 20050902

REACTIONS (9)
  - Ankle fracture [Unknown]
  - Bronchitis [Unknown]
  - Bunion [Unknown]
  - Fibula fracture [Unknown]
  - Tibia fracture [Unknown]
  - Rheumatoid arthritis [Unknown]
  - Osteoporosis [Unknown]
  - Chronic obstructive pulmonary disease [Unknown]
  - Fall [Unknown]
